FAERS Safety Report 4367098-0 (Version None)
Quarter: 2004Q2

REPORT INFORMATION
  Report Type: 
  Country: None (occurrence: None)
  Receive Date: 20040524
  Receipt Date: 20040510
  Transmission Date: 20050107
  Serious: Yes (Hospitalization)
  Sender: FDA-Public Use
  Company Number: USA-2002-004274

PATIENT
  Age: 54 Year
  Sex: Female
  Weight: 61.2 kg

DRUGS (9)
  1. BETASERON [Suspect]
     Indication: MULTIPLE SCLEROSIS
     Dosage: 8 MIU, EVERY 2D, SUBCUTANEOUS
     Route: 058
     Dates: start: 19940101
  2. AMANTADINE HCL [Concomitant]
  3. BACLOFEN [Concomitant]
  4. AMITRIPTYLINE HYDROCHLORIDE [Concomitant]
  5. DITROPAN XL [Concomitant]
  6. AVALIDE (IRBESARTAN) [Concomitant]
  7. MULTIVITAMINS (RETINOL, PANTHENOL) [Concomitant]
  8. VITAMIN E [Concomitant]
  9. VITAMIN C [Concomitant]

REACTIONS (1)
  - BREAST CANCER FEMALE [None]
